FAERS Safety Report 24698795 (Version 2)
Quarter: 2025Q1

REPORT INFORMATION
  Report Type: Spontaneous
  Country: SE (occurrence: SE)
  Receive Date: 20241205
  Receipt Date: 20250219
  Transmission Date: 20250408
  Serious: Yes (Other)
  Sender: BOEHRINGER INGELHEIM
  Company Number: SE-BoehringerIngelheim-2024-BI-066272

PATIENT
  Age: 67 Year
  Sex: Male

DRUGS (1)
  1. JARDIANCE [Suspect]
     Active Substance: EMPAGLIFLOZIN
     Indication: Atrial fibrillation

REACTIONS (6)
  - Cardiac failure [Unknown]
  - Anal abscess [Unknown]
  - Haematotoxicity [Unknown]
  - Hypotension [Unknown]
  - Renal failure [Unknown]
  - Pyrexia [Unknown]

NARRATIVE: CASE EVENT DATE: 20240901
